FAERS Safety Report 22156181 (Version 1)
Quarter: 2023Q1

REPORT INFORMATION
  Report Type: Spontaneous
  Country: US (occurrence: US)
  Receive Date: 20230330
  Receipt Date: 20230330
  Transmission Date: 20230418
  Serious: Yes (Death)
  Sender: FDA-Public Use
  Company Number: US-SAREPTA THERAPEUTICS INC.-SRP2023-003187

PATIENT
  Age: 19 Year
  Sex: Male

DRUGS (1)
  1. EXONDYS 51 [Suspect]
     Active Substance: ETEPLIRSEN
     Indication: Product used for unknown indication
     Dosage: 2450 MILLIGRAM, WEEKLY
     Route: 042

REACTIONS (1)
  - Cardiomyopathy [Fatal]

NARRATIVE: CASE EVENT DATE: 20230318
